FAERS Safety Report 6172710-X (Version None)
Quarter: 2009Q2

REPORT INFORMATION
  Report Type: 
  Country: None (occurrence: None)
  Receive Date: 20090430
  Receipt Date: 20090420
  Transmission Date: 20091009
  Serious: Yes (Hospitalization, Other)
  Sender: FDA-Public Use
  Company Number: US-BIOGENIDEC-2009BI008616

PATIENT
  Age: 46 Year
  Sex: Male

DRUGS (10)
  1. AVONEX [Suspect]
     Indication: MULTIPLE SCLEROSIS
     Route: 030
     Dates: start: 20051101, end: 20061001
  2. AVONEX [Suspect]
     Route: 030
     Dates: start: 20070325
  3. LANTUS [Concomitant]
     Indication: DIABETES MELLITUS
  4. SOLU-MEDROL [Concomitant]
     Indication: CHRONIC OBSTRUCTIVE PULMONARY DISEASE
  5. COPD MEDICATIONS [NOS] [Concomitant]
     Indication: CHRONIC OBSTRUCTIVE PULMONARY DISEASE
  6. ASPIRIN [Concomitant]
     Indication: DRUG USE FOR UNKNOWN INDICATION
  7. XANAX [Concomitant]
     Indication: DRUG USE FOR UNKNOWN INDICATION
  8. PROPHYLAXIS FOR DVT RISK [NOS] [Concomitant]
     Indication: THROMBOSIS PROPHYLAXIS
  9. THEOPHYLLINE [Concomitant]
     Indication: DRUG USE FOR UNKNOWN INDICATION
  10. SPIRIVA [Concomitant]
     Indication: DRUG USE FOR UNKNOWN INDICATION

REACTIONS (27)
  - ABDOMINAL DISTENSION [None]
  - ADRENAL INSUFFICIENCY [None]
  - ANAEMIA [None]
  - ANGINA UNSTABLE [None]
  - ANXIETY [None]
  - BLOOD SODIUM ABNORMAL [None]
  - CATHETERISATION CARDIAC [None]
  - CHRONIC OBSTRUCTIVE PULMONARY DISEASE [None]
  - CONSTIPATION [None]
  - DEHYDRATION [None]
  - DIABETES MELLITUS INADEQUATE CONTROL [None]
  - DRUG LEVEL DECREASED [None]
  - ELECTROCARDIOGRAM CHANGE [None]
  - GASTROOESOPHAGEAL REFLUX DISEASE [None]
  - HYPERKALAEMIA [None]
  - HYPERTENSION [None]
  - HYPOALBUMINAEMIA [None]
  - HYPONATRAEMIA [None]
  - HYPOTENSION [None]
  - INAPPROPRIATE SCHEDULE OF DRUG ADMINISTRATION [None]
  - LEUKOCYTOSIS [None]
  - LUNG DISORDER [None]
  - MALNUTRITION [None]
  - OEDEMA PERIPHERAL [None]
  - PAIN [None]
  - RENAL PAIN [None]
  - SOMNOLENCE [None]
